FAERS Safety Report 23484069 (Version 2)
Quarter: 2024Q2

REPORT INFORMATION
  Report Type: Spontaneous
  Country: AE (occurrence: AE)
  Receive Date: 20240205
  Receipt Date: 20240522
  Transmission Date: 20240716
  Serious: Yes (Other)
  Sender: FDA-Public Use
  Company Number: AE-PFIZER INC-PV202400013431

PATIENT
  Age: 48 Year
  Sex: Female
  Weight: 77.5 kg

DRUGS (3)
  1. ENBREL [Suspect]
     Active Substance: BENZYL ALCOHOL\ETANERCEPT
     Indication: Rheumatoid arthritis
     Dosage: 50 MG
     Route: 058
     Dates: start: 20220412
  2. ENBREL [Suspect]
     Active Substance: BENZYL ALCOHOL\ETANERCEPT
     Dosage: 1 MG, WEEKLY (TAKE ONE INJECTION SC WEEKLY FOR 12  WEEKS)
     Route: 058
     Dates: start: 20240116
  3. METHOTREXATE [Suspect]
     Active Substance: METHOTREXATE
     Indication: Rheumatoid arthritis
     Dosage: UNK
     Route: 058

REACTIONS (3)
  - Gastritis [Recovered/Resolved]
  - Alopecia [Recovered/Resolved]
  - Joint range of motion decreased [Unknown]
